FAERS Safety Report 5645254-9 (Version None)
Quarter: 2008Q1

REPORT INFORMATION
  Report Type: 
  Country: None (occurrence: None)
  Receive Date: 20080229
  Receipt Date: 20080222
  Transmission Date: 20080703
  Serious: Yes (Hospitalization)
  Sender: FDA-Public Use
  Company Number: GB-TEVA-167902ISR

PATIENT
  Age: 65 Year
  Sex: Male

DRUGS (2)
  1. CITALOPRAM HYDROBROMIDE [Suspect]
  2. METHYLTHIONINIUM CHLORIDE [Suspect]

REACTIONS (4)
  - DRUG INTERACTION [None]
  - HYPERHIDROSIS [None]
  - PYREXIA [None]
  - SEROTONIN SYNDROME [None]
